FAERS Safety Report 19491137 (Version 2)
Quarter: 2021Q3

REPORT INFORMATION
  Report Type: Spontaneous
  Country: FR (occurrence: FR)
  Receive Date: 20210705
  Receipt Date: 20210825
  Transmission Date: 20211014
  Serious: Yes (Life-Threatening, Hospitalization, Other)
  Sender: FDA-Public Use
  Company Number: FR-EPICPHARMA-FR-2021EPCLIT00701

PATIENT
  Age: 26 Year
  Sex: Male

DRUGS (5)
  1. DEXTROAMPHET SACCHARAT, AMPHET ASPARTATE, DEXTROAMPHET SULFATE AND AMPHET SULFAT [Suspect]
     Active Substance: AMPHETAMINE ASPARTATE\AMPHETAMINE SULFATE\DEXTROAMPHETAMINE SACCHARATE\DEXTROAMPHETAMINE SULFATE
     Indication: PRODUCT USED FOR UNKNOWN INDICATION
     Route: 065
  2. LEVOSIMENDAN [Interacting]
     Active Substance: LEVOSIMENDAN
     Indication: CARDIOGENIC SHOCK
     Route: 065
  3. DOBUTAMINE [Interacting]
     Active Substance: DOBUTAMINE HYDROCHLORIDE
     Indication: CARDIOGENIC SHOCK
     Dosage: 15 ??G/KG/MIN
     Route: 065
  4. DOBUTAMINE [Interacting]
     Active Substance: DOBUTAMINE HYDROCHLORIDE
     Indication: STRESS CARDIOMYOPATHY
  5. LEVOSIMENDAN [Interacting]
     Active Substance: LEVOSIMENDAN
     Indication: STRESS CARDIOMYOPATHY

REACTIONS (3)
  - Cardiogenic shock [Recovering/Resolving]
  - Substance use [Recovering/Resolving]
  - Stress cardiomyopathy [Recovering/Resolving]
